FAERS Safety Report 22073725 (Version 4)
Quarter: 2023Q4

REPORT INFORMATION
  Report Type: Spontaneous
  Country: US (occurrence: US)
  Receive Date: 20230308
  Receipt Date: 20231122
  Transmission Date: 20240109
  Serious: Yes (Other)
  Sender: FDA-Public Use
  Company Number: US-PFIZER INC-PV202300035249

PATIENT
  Age: 84 Year
  Sex: Male

DRUGS (4)
  1. IBRANCE [Suspect]
     Active Substance: PALBOCICLIB
     Indication: Breast cancer female
     Dosage: 75 MG, QD X 15 DAYS THEN TAKE 15 DAYS REST PERIOD
     Route: 048
  2. IBRANCE [Suspect]
     Active Substance: PALBOCICLIB
     Indication: Prostate cancer
     Dosage: 125 MG, CYCLIC, (14 DAYS THEN TAKE 14 DAYS OFF)
     Route: 048
  3. IBRANCE [Suspect]
     Active Substance: PALBOCICLIB
     Indication: Chronic kidney disease
     Dosage: 125 MG
     Dates: start: 20230222
  4. IBRANCE [Suspect]
     Active Substance: PALBOCICLIB
     Dosage: 125 MG, CYCLIC (125 MG FOR 14 DAYS OUT OF THE MONTH.)

REACTIONS (4)
  - Chronic kidney disease [Unknown]
  - Off label use [Unknown]
  - Product use issue [Unknown]
  - Abdominal pain upper [Unknown]
